FAERS Safety Report 24018533 (Version 4)
Quarter: 2024Q3

REPORT INFORMATION
  Report Type: Report from Study
  Country: CA (occurrence: CA)
  Receive Date: 20240627
  Receipt Date: 20240819
  Transmission Date: 20241017
  Serious: Yes (Hospitalization)
  Sender: ABBVIE
  Company Number: CA-ABBVIE-5817049

PATIENT
  Age: 36 Year
  Sex: Male

DRUGS (4)
  1. RINVOQ [Suspect]
     Active Substance: UPADACITINIB
     Indication: Crohn^s disease
     Dosage: FORM STRENGTH 45 MG, LAST ADMIN DATE WAS 2024
     Route: 048
     Dates: start: 20240429
  2. RINVOQ [Suspect]
     Active Substance: UPADACITINIB
     Indication: Crohn^s disease
     Dosage: FORM STRENGTH 45 MG?FIRST ADMIN DATE WAS 2024.?LAST ADMIN DATE WAS 2024.
     Route: 048
  3. RINVOQ [Suspect]
     Active Substance: UPADACITINIB
     Indication: Crohn^s disease
     Dosage: FIRST ADMIN DATE WAS 2024.?LAST ADMIN DATE WAS 2024.
     Route: 048
  4. RINVOQ [Suspect]
     Active Substance: UPADACITINIB
     Indication: Crohn^s disease
     Dosage: FORM STRENGTH: 45 MILLIGRAM?FIREST ADMIN DATE WAS 2024?DURATION TEXT: FOR5-6 DAYS
     Route: 048

REACTIONS (4)
  - Illness [Unknown]
  - Gastrointestinal pain [Unknown]
  - Feeding disorder [Unknown]
  - Crohn^s disease [Unknown]

NARRATIVE: CASE EVENT DATE: 20240101
